FAERS Safety Report 9838283 (Version 2)
Quarter: 2014Q2

REPORT INFORMATION
  Report Type: Spontaneous
  Country: US (occurrence: None)
  Receive Date: 20131205
  Receipt Date: 20140604
  Transmission Date: 20141212
  Serious: Yes (Disabling)
  Sender: FDA-Public Use
  Company Number: 163-POMAL-13081685

PATIENT
  Age: 75 Year
  Sex: Female

DRUGS (10)
  1. POMALYST [Suspect]
     Indication: PLASMA CELL MYELOMA
     Dosage: 4 MG, 21 IN 21 D
     Route: 048
     Dates: start: 20130617, end: 20130720
  2. CENTRUM SILVER (CENTRUM SILVER) (TABLETS) [Concomitant]
  3. DEXAMETHASONE (DEXAMETHASONE) [Concomitant]
  4. DIOVAN (VALSARTAN) [Concomitant]
  5. ECOTRIN (ACETYLSALICYLIC ACID) (ENTERIC-COATED TABLET) [Concomitant]
  6. EMLA (EMLA) [Concomitant]
  7. LORAZEPAM [Concomitant]
  8. LORTAB (VICODIN) [Concomitant]
  9. PROCHLORPERAZINE MALEATE (PROCHLORPERAZINE MALEATE) [Concomitant]
  10. SENOKOT (SENNA FRUIT) [Concomitant]

REACTIONS (2)
  - Asthenia [None]
  - Fatigue [None]
